FAERS Safety Report 25860051 (Version 2)
Quarter: 2025Q4

REPORT INFORMATION
  Report Type: Report from Study
  Country: US (occurrence: US)
  Receive Date: 20250929
  Receipt Date: 20251003
  Transmission Date: 20260118
  Serious: Yes (Hospitalization, Other)
  Sender: ALNYLAM PHARMACEUTICALS
  Company Number: US-ALNYLAM PHARMACEUTICALS, INC.-ALN-2025-005497

PATIENT
  Age: 56 Year

DRUGS (1)
  1. AMVUTTRA [Suspect]
     Active Substance: VUTRISIRAN
     Indication: Acquired ATTR amyloidosis
     Dosage: UNK
     Route: 065

REACTIONS (5)
  - Cardiac ablation [Recovered/Resolved]
  - Hepatitis C [Unknown]
  - Ill-defined disorder [Not Recovered/Not Resolved]
  - Fatigue [Recovering/Resolving]
  - Therapy interrupted [Unknown]
